FAERS Safety Report 9548209 (Version 1)
Quarter: 2013Q3

REPORT INFORMATION
  Report Type: Spontaneous
  Country: US (occurrence: None)
  Receive Date: 20130923
  Receipt Date: 20130923
  Transmission Date: 20140515
  Serious: Yes (Other)
  Sender: FDA-Public Use
  Company Number: None

PATIENT
  Sex: Female

DRUGS (2)
  1. CETAPHIL DAILY FACIAL MOISTURIZER SPF15 [Suspect]
     Indication: SUNBURN
     Dosage: 1 TEASPOON AM APPLICATION FACE AND NECK
     Route: 061
     Dates: start: 20130501, end: 20130919
  2. CETAPHIL DAILY FACIAL MOISTURIZER SPF15 [Suspect]
     Indication: PROPHYLAXIS
     Dosage: 1 TEASPOON AM APPLICATION FACE AND NECK
     Route: 061
     Dates: start: 20130501, end: 20130919

REACTIONS (1)
  - Hordeolum [None]
